FAERS Safety Report 4304064-5 (Version None)
Quarter: 2004Q1

REPORT INFORMATION
  Report Type: 
  Country: None (occurrence: None)
  Receive Date: 20040223
  Receipt Date: 20031210
  Transmission Date: 20041129
  Serious: Yes (Other)
  Sender: FDA-Public Use
  Company Number: PHEH2003US11293

PATIENT
  Age: 71 Year
  Sex: Female

DRUGS (5)
  1. ZELNORM [Suspect]
     Indication: IRRITABLE BOWEL SYNDROME
     Dosage: 6 MG, BID, ORAL
     Route: 048
     Dates: start: 20030601, end: 20030801
  2. NEXIUM [Concomitant]
  3. COZAAR [Concomitant]
  4. FUROSEMIDE [Concomitant]
  5. XANAX [Concomitant]

REACTIONS (2)
  - INSOMNIA [None]
  - SUICIDAL IDEATION [None]
